FAERS Safety Report 4455399-7 (Version None)
Quarter: 2004Q3

REPORT INFORMATION
  Report Type: 
  Country: None (occurrence: None)
  Receive Date: 20040830
  Receipt Date: 20040621
  Transmission Date: 20050211
  Serious: No
  Sender: FDA-Public Use
  Company Number: 205808

PATIENT
  Age: 40 Year
  Sex: Male
  Weight: 43.1 kg

DRUGS (5)
  1. XOLAIR [Suspect]
     Indication: ASTHMA
     Dosage: 375 MG,Q2W,SUBCUTANEOUS
     Route: 058
     Dates: start: 20031217
  2. ADVAIR (FLUTICASON PROPIONATE, SALMETEROL XINAFOATE) [Concomitant]
  3. NEXIUM [Concomitant]
  4. CLARINEX [Concomitant]
  5. ALBUTEROL (ALBUTEROL, ALBUTEROL SULFATE) [Concomitant]

REACTIONS (2)
  - ANXIETY [None]
  - DEPRESSION [None]
